FAERS Safety Report 13795736 (Version 1)
Quarter: 2017Q3

REPORT INFORMATION
  Report Type: Report from Study
  Country: US (occurrence: US)
  Receive Date: 20170726
  Receipt Date: 20170726
  Transmission Date: 20171127
  Serious: Yes (Other)
  Sender: FDA-Public Use
  Company Number: US-ELI_LILLY_AND_COMPANY-US201707008117

PATIENT

DRUGS (3)
  1. PEMBROLIZUMAB. [Concomitant]
     Active Substance: PEMBROLIZUMAB
     Indication: METASTATIC NEOPLASM
     Dosage: 2 MG/KG, CYCLICAL
     Route: 042
  2. VINORELBINE DITARTRATE [Suspect]
     Active Substance: VINORELBINE TARTRATE
     Indication: METASTATIC NEOPLASM
     Dosage: UNK, CYCLICAL
     Route: 065
  3. GEMCITABINE HYDROCHLORIDE. [Suspect]
     Active Substance: GEMCITABINE HYDROCHLORIDE
     Indication: METASTATIC NEOPLASM
     Dosage: 1000 MG/M2, CYCLICAL
     Route: 065

REACTIONS (3)
  - Nausea [Unknown]
  - Hypoxia [Unknown]
  - Vomiting [Unknown]
